FAERS Safety Report 25357673 (Version 2)
Quarter: 2025Q2

REPORT INFORMATION
  Report Type: Spontaneous
  Country: US (occurrence: US)
  Receive Date: 20250526
  Receipt Date: 20250530
  Transmission Date: 20250716
  Serious: No
  Sender: ROCHE
  Company Number: US-ROCHE-10000288850

PATIENT
  Sex: Female
  Weight: 109 kg

DRUGS (1)
  1. OCREVUS [Suspect]
     Active Substance: OCRELIZUMAB
     Indication: Multiple sclerosis
     Dosage: ON 20-3-2025 RECEIVED MOST RECENT DOSE PRIOR TO AE
     Route: 042
     Dates: start: 20230109

REACTIONS (1)
  - Adverse drug reaction [Unknown]
